FAERS Safety Report 20639654 (Version 1)
Quarter: 2022Q1

REPORT INFORMATION
  Report Type: Spontaneous
  Country: US (occurrence: US)
  Receive Date: 20220326
  Receipt Date: 20220326
  Transmission Date: 20220424
  Serious: No
  Sender: FDA-Public Use
  Company Number: US-SA-SAC20220318000081

PATIENT
  Sex: Male

DRUGS (13)
  1. DUPIXENT [Suspect]
     Active Substance: DUPILUMAB
     Dosage: 300 MG, QOW
     Route: 058
  2. ARNUITY ELLIPTA [Concomitant]
     Active Substance: FLUTICASONE FUROATE
  3. TACROLIMUS [Concomitant]
     Active Substance: TACROLIMUS
  4. MOMETASONE FUROATE [Concomitant]
     Active Substance: MOMETASONE FUROATE
  5. GLYBURIDE [Concomitant]
     Active Substance: GLYBURIDE
  6. SIMVASTATIN [Concomitant]
     Active Substance: SIMVASTATIN
  7. METFORMIN HYDROCHLORIDE [Concomitant]
     Active Substance: METFORMIN HYDROCHLORIDE
  8. FARXIGA [Concomitant]
     Active Substance: DAPAGLIFLOZIN PROPANEDIOL
  9. DIGOXIN [Concomitant]
     Active Substance: DIGOXIN
  10. ATENOLOL [Concomitant]
     Active Substance: ATENOLOL
  11. OLMESARTAN MEDOXOMIL [Concomitant]
     Active Substance: OLMESARTAN MEDOXOMIL
  12. ELIQUIS [Concomitant]
     Active Substance: APIXABAN
  13. FLUTICASONE PROPIONATE [Concomitant]
     Active Substance: FLUTICASONE PROPIONATE

REACTIONS (1)
  - Rash [Unknown]
